FAERS Safety Report 6536761-5 (Version None)
Quarter: 2010Q1

REPORT INFORMATION
  Report Type: 
  Country: None (occurrence: None)
  Receive Date: 20100113
  Receipt Date: 20100104
  Transmission Date: 20100710
  Serious: Yes (Other)
  Sender: FDA-Public Use
  Company Number: TR-GENENTECH-296047

PATIENT
  Sex: Female

DRUGS (3)
  1. XOLAIR [Suspect]
     Indication: ASTHMA
     Dosage: 275 MG, Q2W
     Route: 058
     Dates: start: 20090601, end: 20091101
  2. FORADIL [Concomitant]
     Indication: DRUG USE FOR UNKNOWN INDICATION
  3. MONTELUKAST SODIUM [Concomitant]
     Indication: DRUG USE FOR UNKNOWN INDICATION

REACTIONS (2)
  - MENSTRUAL DISORDER [None]
  - OVARIAN CYST [None]
